FAERS Safety Report 9143950 (Version 7)
Quarter: 2015Q1

REPORT INFORMATION
  Report Type: Report from Study
  Country: BR (occurrence: BR)
  Receive Date: 20130306
  Receipt Date: 20150226
  Transmission Date: 20150721
  Serious: Yes (Hospitalization, Other)
  Sender: FDA-Public Use
  Company Number: BR-ROCHE-1197401

PATIENT
  Age: 40 Year
  Sex: Female
  Weight: 110 kg

DRUGS (11)
  1. FOLIC ACID. [Concomitant]
     Active Substance: FOLIC ACID
  2. PREDNISONE. [Concomitant]
     Active Substance: PREDNISONE
     Route: 065
  3. PRELONE [Concomitant]
     Active Substance: PREDNISOLONE
     Route: 065
  4. METHOTREXATE [Concomitant]
     Active Substance: METHOTREXATE
     Indication: PAIN
  5. TYLENOL [Concomitant]
     Active Substance: ACETAMINOPHEN
     Indication: PAIN
  6. GLIFAGE [Concomitant]
     Active Substance: METFORMIN HYDROCHLORIDE
     Dosage: 2 TABLETS BEFORE SLEEPING
     Route: 065
  7. DIPYRONE [Concomitant]
     Active Substance: DIPYRONE
  8. ACTEMRA [Suspect]
     Active Substance: TOCILIZUMAB
     Indication: RHEUMATOID ARTHRITIS
     Dosage: THE MOST RECENT INFUSION ON 01/APR/2014.
     Route: 042
     Dates: start: 20120719, end: 201404
  9. OMEGA 3 [Concomitant]
     Active Substance: OMEGA-3 FATTY ACIDS
     Route: 065
  10. TRAMAL [Concomitant]
     Active Substance: TRAMADOL
     Indication: PAIN
     Route: 065
  11. LOSARTAN [Concomitant]
     Active Substance: LOSARTAN
     Route: 065

REACTIONS (13)
  - Skin plaque [Not Recovered/Not Resolved]
  - Uterine disorder [Unknown]
  - Influenza [Not Recovered/Not Resolved]
  - Drug dose omission [Unknown]
  - Hormone level abnormal [Unknown]
  - Immunodeficiency [Not Recovered/Not Resolved]
  - Dysphonia [Not Recovered/Not Resolved]
  - Uterine cyst [Recovered/Resolved]
  - Blood pressure increased [Unknown]
  - Anaemia [Recovered/Resolved]
  - Pain [Unknown]
  - Hepatic steatosis [Unknown]
  - Nasopharyngitis [Recovered/Resolved]

NARRATIVE: CASE EVENT DATE: 201302
